FAERS Safety Report 19520658 (Version 1)
Quarter: 2021Q3

REPORT INFORMATION
  Report Type: Spontaneous
  Country: BG (occurrence: BG)
  Receive Date: 20210712
  Receipt Date: 20210712
  Transmission Date: 20211014
  Serious: Yes (Other)
  Sender: FDA-Public Use
  Company Number: BG-AMGEN-BGRSP2021103097

PATIENT
  Age: 69 Year
  Sex: Female

DRUGS (4)
  1. THYROID STIMULATING HORMONE [Concomitant]
     Dosage: 0.6 MIU/L
  2. PROLIA [Suspect]
     Active Substance: DENOSUMAB
     Indication: OSTEOPOROSIS
     Dosage: 60 MILLIGRAM, Q6MO
     Route: 058
     Dates: start: 201812
  3. LT4 [Concomitant]
     Dosage: 100 MICROGRAM
  4. PERINDOPRIL/INDAPAMIDE [Concomitant]
     Active Substance: INDAPAMIDE\PERINDOPRIL
     Dosage: 4MG/1.25MG

REACTIONS (3)
  - Intervertebral disc protrusion [Unknown]
  - Spinal osteoarthritis [Unknown]
  - Pathological fracture [Unknown]

NARRATIVE: CASE EVENT DATE: 202006
